FAERS Safety Report 4434406-1 (Version None)
Quarter: 2004Q3

REPORT INFORMATION
  Report Type: 
  Country: None (occurrence: None)
  Receive Date: 20040825
  Receipt Date: 20040815
  Transmission Date: 20050211
  Serious: Yes (Other)
  Sender: FDA-Public Use
  Company Number: 2004055671

PATIENT
  Sex: Male

DRUGS (1)
  1. CADUET [Suspect]
     Indication: ILL-DEFINED DISORDER
     Dosage: ^5/10^

REACTIONS (1)
  - ANAPHYLACTIC SHOCK [None]
